FAERS Safety Report 19735846 (Version 2)
Quarter: 2021Q3

REPORT INFORMATION
  Report Type: Spontaneous
  Country: BR (occurrence: BR)
  Receive Date: 20210823
  Receipt Date: 20210921
  Transmission Date: 20211014
  Serious: Yes (Hospitalization, Other)
  Sender: FDA-Public Use
  Company Number: NVSC2021BR184515

PATIENT
  Age: 62 Year
  Sex: Female
  Weight: 71.5 kg

DRUGS (3)
  1. EXEMESTANE. [Concomitant]
     Active Substance: EXEMESTANE
     Indication: BREAST NEOPLASM
     Dosage: 25 MG, QD
     Route: 048
     Dates: start: 202103
  2. RIBOCICLIB. [Suspect]
     Active Substance: RIBOCICLIB
     Indication: BREAST NEOPLASM
     Dosage: 600 MG, QD
     Route: 065
     Dates: start: 20210706
  3. RIBOCICLIB. [Suspect]
     Active Substance: RIBOCICLIB
     Dosage: 600 MG, DAILY
     Route: 048
     Dates: start: 20210706

REACTIONS (5)
  - Pancreatitis acute [Recovered/Resolved]
  - Abdominal discomfort [Unknown]
  - Abdominal pain [Unknown]
  - Diarrhoea [Unknown]
  - Vomiting [Unknown]

NARRATIVE: CASE EVENT DATE: 20210708
